FAERS Safety Report 16041747 (Version 1)
Quarter: 2019Q2

REPORT INFORMATION
  Report Type: Spontaneous
  Country: US (occurrence: US)
  Receive Date: 20190306
  Receipt Date: 20190306
  Transmission Date: 20190711
  Serious: Yes (Hospitalization, Disabling, Other)
  Sender: FDA-Public Use
  Company Number: None

PATIENT
  Age: 70 Year
  Sex: Male
  Weight: 78.93 kg

DRUGS (13)
  1. ISOSORBIDE. [Concomitant]
     Active Substance: ISOSORBIDE
  2. NOVOLOG [Concomitant]
     Active Substance: INSULIN ASPART
  3. TORSEMIDE. [Concomitant]
     Active Substance: TORSEMIDE
  4. AMIODARONE [Suspect]
     Active Substance: AMIODARONE
     Indication: ARRHYTHMIA
     Dosage: ?          QUANTITY:2 TABLET(S);?
     Route: 048
     Dates: start: 20190130, end: 20190301
  5. TAMSULSON [Concomitant]
  6. SPIRONOLACTON [Concomitant]
     Active Substance: SPIRONOLACTONE
  7. ATROVASTANT [Concomitant]
  8. FINASTERIDE. [Concomitant]
     Active Substance: FINASTERIDE
  9. PLAVIX [Concomitant]
     Active Substance: CLOPIDOGREL BISULFATE
  10. TRESIBA [Concomitant]
     Active Substance: INSULIN DEGLUDEC
  11. CARVEDILOL. [Concomitant]
     Active Substance: CARVEDILOL
  12. RANEXA [Concomitant]
     Active Substance: RANOLAZINE
  13. ELIQUIS [Concomitant]
     Active Substance: APIXABAN

REACTIONS (7)
  - Dizziness [None]
  - Neck pain [None]
  - Headache [None]
  - Back pain [None]
  - Musculoskeletal pain [None]
  - Insomnia [None]
  - Arthralgia [None]

NARRATIVE: CASE EVENT DATE: 20190302
